FAERS Safety Report 8615351-4 (Version None)
Quarter: 2012Q3

REPORT INFORMATION
  Report Type: 
  Country: None (occurrence: None)
  Receive Date: 20120823
  Receipt Date: 20120814
  Transmission Date: 20120928
  Serious: Yes (Hospitalization)
  Sender: FDA-Public Use
  Company Number: GR-009507513-1110GRC00002

PATIENT

DRUGS (5)
  1. QUINAPRIL HYDROCHLORIDE [Concomitant]
     Indication: HYPERTENSION
     Route: 048
  2. SERTRALINE HYDROCHLORIDE [Concomitant]
  3. CYANOCOBALAMIN (+) PYRIDOXINE (+) THIAMINE [Concomitant]
  4. HYDROCHLOROTHIAZIDE [Concomitant]
     Route: 048
  5. JANUMET [Suspect]
     Indication: DIABETES MELLITUS
     Dosage: 2000 (+) 100
     Route: 048
     Dates: start: 20100101, end: 20100101

REACTIONS (1)
  - PEMPHIGOID [None]
